FAERS Safety Report 8470779-0 (Version None)
Quarter: 2012Q2

REPORT INFORMATION
  Report Type: 
  Country: None (occurrence: None)
  Receive Date: 20120627
  Receipt Date: 20120620
  Transmission Date: 20120825
  Serious: Yes (Death)
  Sender: FDA-Public Use
  Company Number: JP-PFIZER INC-2012152156

PATIENT
  Age: 63 Year
  Sex: Male

DRUGS (11)
  1. DAUNORUBICIN HCL [Concomitant]
     Indication: ACUTE MYELOID LEUKAEMIA
     Route: 041
  2. MEROPENEM [Concomitant]
     Indication: FEBRILE NEUTROPENIA
     Dosage: 3 G/DAY
     Route: 041
  3. VFEND [Concomitant]
     Indication: ANTIFUNGAL PROPHYLAXIS
     Dosage: 600 MG/DAY
     Route: 048
  4. FLUCONAZOLE [Concomitant]
     Indication: ANTIFUNGAL PROPHYLAXIS
     Dosage: 100 MG/DAY
     Route: 048
  5. ZOSYN [Suspect]
     Indication: FEBRILE NEUTROPENIA
     Dosage: 4.5 G, 3X/DAY
     Route: 041
  6. NOVANTRONE [Concomitant]
     Indication: ACUTE MYELOID LEUKAEMIA
     Route: 041
  7. VFEND [Concomitant]
     Dosage: 300 MG DAILY
  8. CYTARABINE [Concomitant]
     Indication: ACUTE MYELOID LEUKAEMIA
     Route: 041
  9. ZOSYN [Suspect]
     Dosage: 4.5 G, 3X/DAY
     Route: 041
  10. ETOPOSIDE [Concomitant]
     Indication: ACUTE MYELOID LEUKAEMIA
     Route: 041
  11. TEICOPLANIN [Concomitant]
     Route: 041

REACTIONS (1)
  - LUNG INFECTION PSEUDOMONAL [None]
